FAERS Safety Report 4931979-7 (Version None)
Quarter: 2006Q1

REPORT INFORMATION
  Report Type: 
  Country: None (occurrence: None)
  Receive Date: 20060303
  Receipt Date: 20060223
  Transmission Date: 20060701
  Serious: Yes (Other)
  Sender: FDA-Public Use
  Company Number: US-GLAXOSMITHKLINE-A0595543A

PATIENT
  Age: 29 Year
  Sex: Female

DRUGS (2)
  1. ZOFRAN [Suspect]
     Indication: NAUSEA
     Dosage: 2MG PER DAY
     Route: 042
     Dates: start: 20050701
  2. IRON [Concomitant]

REACTIONS (2)
  - ANAEMIA [None]
  - DRUG EXPOSURE DURING PREGNANCY [None]
